FAERS Safety Report 10256947 (Version 4)
Quarter: 2014Q3

REPORT INFORMATION
  Report Type: Report from Study
  Country: US (occurrence: US)
  Receive Date: 20140625
  Receipt Date: 20140929
  Transmission Date: 20150326
  Serious: Yes (Other)
  Sender: FDA-Public Use
  Company Number: US-ALEXION PHARMACEUTICALS INC.-A201305392

PATIENT

DRUGS (3)
  1. SOLIRIS [Suspect]
     Active Substance: ECULIZUMAB
     Indication: PAROXYSMAL NOCTURNAL HAEMOGLOBINURIA
     Dosage: 900 MG, EVERY 12 DAYS
     Route: 042
     Dates: start: 20070511
  2. MS [Concomitant]
     Indication: ABDOMINAL PAIN
     Dosage: UNK
     Route: 065
  3. OPIUM TINCTURE [Suspect]
     Active Substance: OPIUM TINCTURE
     Indication: PRODUCT USED FOR UNKNOWN INDICATION
     Route: 065

REACTIONS (12)
  - Crohn^s disease [Unknown]
  - Thrombocytopenia [Not Recovered/Not Resolved]
  - Malabsorption [Not Recovered/Not Resolved]
  - Abdominal pain [Not Recovered/Not Resolved]
  - Dizziness [Unknown]
  - Scar [Not Recovered/Not Resolved]
  - Diarrhoea [Not Recovered/Not Resolved]
  - Myelodysplastic syndrome [Unknown]
  - Short-bowel syndrome [Not Recovered/Not Resolved]
  - Blood copper decreased [Unknown]
  - Platelet count decreased [Not Recovered/Not Resolved]
  - Abdominal pain [Unknown]

NARRATIVE: CASE EVENT DATE: 20120606
